FAERS Safety Report 13760360 (Version 2)
Quarter: 2017Q3

REPORT INFORMATION
  Report Type: Spontaneous
  Country: US (occurrence: US)
  Receive Date: 20170717
  Receipt Date: 20170901
  Transmission Date: 20171127
  Serious: Yes (Death, Other)
  Sender: FDA-Public Use
  Company Number: US-JNJFOC-20170712624

PATIENT
  Age: 85 Year
  Sex: Male

DRUGS (15)
  1. ALLOPURINOL. [Concomitant]
     Active Substance: ALLOPURINOL
     Indication: TUMOUR LYSIS SYNDROME
     Dosage: 300 MG, UNK
     Route: 048
  2. COMPAZINE [Concomitant]
     Active Substance: PROCHLORPERAZINE MALEATE
     Route: 048
  3. CIPRO [Concomitant]
     Active Substance: CIPROFLOXACIN HYDROCHLORIDE
     Dosage: 500 MG, UNK
     Route: 048
  4. FUROSEMIDE. [Concomitant]
     Active Substance: FUROSEMIDE
     Dosage: 20 MG, UNK
     Route: 048
  5. SPIRIVA [Concomitant]
     Active Substance: TIOTROPIUM BROMIDE MONOHYDRATE
     Dosage: 18 MCG, UNK
  6. PROVENTIL [Concomitant]
     Active Substance: ALBUTEROL
     Dosage: DOSAGE: 90 MCG/ACTUATION
  7. IMBRUVICA [Suspect]
     Active Substance: IBRUTINIB
     Indication: CHRONIC LYMPHOCYTIC LEUKAEMIA
     Route: 048
     Dates: start: 20170616
  8. ASPIRIN. [Concomitant]
     Active Substance: ASPIRIN
     Dosage: 81 MG, UNK
     Route: 048
  9. OMEPRAZOLE. [Concomitant]
     Active Substance: OMEPRAZOLE
     Dosage: 20 MG, UNK
     Route: 048
  10. AMITRIPTYLINE [Concomitant]
     Active Substance: AMITRIPTYLINE
     Dosage: 50 MG, UNK
     Route: 048
  11. SYMBICORT [Concomitant]
     Active Substance: BUDESONIDE\FORMOTEROL FUMARATE DIHYDRATE
     Dosage: 160 MCG, 4.5 MCG/ACTUATION
  12. MIRALAX [Concomitant]
     Active Substance: POLYETHYLENE GLYCOL 3350
     Dosage: 17 G/DOSE
     Route: 048
  13. PRESERVISION AREDS [Concomitant]
     Active Substance: MINERALS\VITAMINS
  14. LISINOPRIL. [Concomitant]
     Active Substance: LISINOPRIL
     Dosage: 2.5 MG, UNK
     Route: 048
  15. ZOFRAN [Concomitant]
     Active Substance: ONDANSETRON HYDROCHLORIDE
     Route: 048

REACTIONS (30)
  - Tachycardia [Unknown]
  - Thrombocytopenia [Unknown]
  - Asthenia [Not Recovered/Not Resolved]
  - Off label use [Unknown]
  - Dyspnoea [Unknown]
  - Nausea [Unknown]
  - Diarrhoea [Unknown]
  - Depression [Unknown]
  - Skin lesion [Unknown]
  - Product use issue [Unknown]
  - Contusion [Unknown]
  - Cough [Unknown]
  - Arthralgia [Unknown]
  - Fatigue [Not Recovered/Not Resolved]
  - Increased tendency to bruise [Unknown]
  - Dry mouth [Unknown]
  - Wheezing [Unknown]
  - Pain [Unknown]
  - Dyspnoea exertional [Unknown]
  - Decreased appetite [Unknown]
  - Abdominal pain [Unknown]
  - Haemorrhage [Unknown]
  - Back pain [Unknown]
  - Malaise [Unknown]
  - Sputum discoloured [Unknown]
  - Myalgia [Unknown]
  - Ecchymosis [Unknown]
  - Death [Fatal]
  - Arthropod bite [Unknown]
  - Dizziness [Unknown]

NARRATIVE: CASE EVENT DATE: 20170616
